FAERS Safety Report 21754668 (Version 1)
Quarter: 2022Q4

REPORT INFORMATION
  Report Type: Spontaneous
  Country: US (occurrence: US)
  Receive Date: 20221220
  Receipt Date: 20221220
  Transmission Date: 20230113
  Serious: No
  Sender: FDA-Public Use
  Company Number: US-PFIZER INC-202201381348

PATIENT
  Age: 82 Year
  Sex: Female

DRUGS (8)
  1. IBRANCE [Suspect]
     Active Substance: PALBOCICLIB
     Dosage: 1 CAPSULE EVERY MORNING FOR 3 WEEKS ON AND 1 WEEK OFF
     Route: 048
     Dates: start: 202008, end: 202211
  2. REMERON [Concomitant]
     Active Substance: MIRTAZAPINE
  3. CLONAZEPAM [Concomitant]
     Active Substance: CLONAZEPAM
  4. PANTOPRAZOLE SODIUM [Concomitant]
     Active Substance: PANTOPRAZOLE SODIUM
  5. ACETAMINOPHEN\HYDROCODONE [Concomitant]
     Active Substance: ACETAMINOPHEN\HYDROCODONE
  6. ESCITALOPRAM OXALATE [Concomitant]
     Active Substance: ESCITALOPRAM OXALATE
  7. MIRALAX [Concomitant]
     Active Substance: POLYETHYLENE GLYCOL 3350
  8. DULCOLAX STOOL SOFTENER [Concomitant]
     Active Substance: DOCUSATE SODIUM

REACTIONS (6)
  - Oral pain [Unknown]
  - Diarrhoea [Unknown]
  - Nausea [Unknown]
  - Constipation [Unknown]
  - Decreased appetite [Unknown]
  - Neoplasm progression [Unknown]
